FAERS Safety Report 9271410 (Version 2)
Quarter: 2013Q2

REPORT INFORMATION
  Report Type: Spontaneous
  Country: BE (occurrence: BE)
  Receive Date: 20130506
  Receipt Date: 20130516
  Transmission Date: 20140414
  Serious: Yes (Other)
  Sender: FDA-Public Use
  Company Number: PHHY2013BE043095

PATIENT
  Sex: Male

DRUGS (4)
  1. ACLASTA [Suspect]
     Indication: OSTEOPOROSIS
     Dosage: 5 MG, YEARLY
     Route: 042
  2. ACLASTA [Suspect]
     Dosage: 5 MG, YEARLY
     Route: 042
  3. ACLASTA [Suspect]
     Dosage: 5 MG, YEARLY
     Route: 042
  4. ACLASTA [Suspect]
     Dosage: 5 MG, YEARLY
     Route: 042

REACTIONS (6)
  - Syncope [Recovered/Resolved]
  - Venous insufficiency [Recovered/Resolved]
  - Incorrect drug administration rate [Unknown]
  - Pallor [Unknown]
  - Tinnitus [Unknown]
  - Dizziness [Recovered/Resolved]
